FAERS Safety Report 20805333 (Version 1)
Quarter: 2022Q2

REPORT INFORMATION
  Report Type: Spontaneous
  Country: FR (occurrence: FR)
  Receive Date: 20220509
  Receipt Date: 20220509
  Transmission Date: 20220721
  Serious: Yes (Other)
  Sender: FDA-Public Use
  Company Number: FR-JNJFOC-20190523486

PATIENT
  Age: 58 Year
  Sex: Male

DRUGS (1)
  1. IMBRUVICA [Suspect]
     Active Substance: IBRUTINIB
     Indication: Product used for unknown indication
     Route: 048

REACTIONS (7)
  - Diabetes mellitus [Unknown]
  - Hepatitis toxic [Unknown]
  - Angioedema [Unknown]
  - Multiple allergies [Unknown]
  - Off label use [Unknown]
  - Product preparation issue [Unknown]
  - Urticaria [Unknown]

NARRATIVE: CASE EVENT DATE: 20190517
